FAERS Safety Report 9892417 (Version 2)
Quarter: 2014Q1

REPORT INFORMATION
  Report Type: Spontaneous
  Country: US (occurrence: US)
  Receive Date: 20140212
  Receipt Date: 20140212
  Transmission Date: 20141002
  Serious: Yes (Other)
  Sender: FDA-Public Use
  Company Number: US-FRI-1000007789

PATIENT
  Age: 49 Year
  Sex: Male

DRUGS (6)
  1. CELEXA [Suspect]
     Indication: OBSESSIVE-COMPULSIVE DISORDER
     Route: 048
  2. VITAMINS [Concomitant]
  3. HYDROCHLOROTHIAZIDE [Concomitant]
  4. ASPIRIN [Concomitant]
  5. CALCIUM [Concomitant]
  6. COENZYME Q10 [Concomitant]

REACTIONS (2)
  - Dizziness [Unknown]
  - Antiphospholipid syndrome [Not Recovered/Not Resolved]
